FAERS Safety Report 9705148 (Version 5)
Quarter: 2015Q1

REPORT INFORMATION
  Report Type: Spontaneous
  Country: US (occurrence: US)
  Receive Date: 20131122
  Receipt Date: 20150327
  Transmission Date: 20150721
  Serious: Yes (Life-Threatening, Hospitalization, Other)
  Sender: FDA-Public Use
  Company Number: US-BAYER-2013-139877

PATIENT
  Age: 27 Year
  Sex: Female
  Weight: 68 kg

DRUGS (8)
  1. IBUPROFEN. [Concomitant]
     Active Substance: IBUPROFEN
  2. DILAUDID [Concomitant]
     Active Substance: HYDROMORPHONE HYDROCHLORIDE
  3. MIRENA [Suspect]
     Active Substance: LEVONORGESTREL
     Indication: CONTRACEPTION
     Dosage: 20 MCG/24HR, CONT
     Route: 015
     Dates: start: 200312, end: 20071026
  4. DEPO-PROVERA [Concomitant]
     Active Substance: MEDROXYPROGESTERONE ACETATE
  5. ALBUTEROL. [Concomitant]
     Active Substance: ALBUTEROL
  6. PAXIL [Concomitant]
     Active Substance: PAROXETINE HYDROCHLORIDE
  7. DIFLUCAN [Concomitant]
     Active Substance: FLUCONAZOLE
     Indication: FUNGAL INFECTION
  8. MIRENA [Suspect]
     Active Substance: LEVONORGESTREL
     Indication: MENORRHAGIA
     Dosage: 20 MCG/24HR, CONT
     Route: 015
     Dates: start: 20071026, end: 20080609

REACTIONS (22)
  - Depression [None]
  - Procedural pain [Not Recovered/Not Resolved]
  - Abdominal pain lower [None]
  - Drug ineffective [None]
  - Anhedonia [None]
  - Device defective [None]
  - Device issue [None]
  - Abdominal distension [None]
  - Uterine haemorrhage [None]
  - General physical health deterioration [None]
  - Infertility female [None]
  - Emotional distress [None]
  - Abortion spontaneous incomplete [None]
  - Genital haemorrhage [Not Recovered/Not Resolved]
  - Uterine perforation [None]
  - Device difficult to use [None]
  - Pelvic pain [None]
  - Embedded device [None]
  - Injury [None]
  - Anxiety [None]
  - Pregnancy with contraceptive device [None]
  - Infection [None]

NARRATIVE: CASE EVENT DATE: 2007
